FAERS Safety Report 8920913 (Version 1)
Quarter: 2012Q4

REPORT INFORMATION
  Report Type: 
  Country: JP (occurrence: JP)
  Receive Date: 20121121
  Receipt Date: 20121121
  Transmission Date: 20130627
  Serious: Yes (Other)
  Sender: FDA-Public Use
  Company Number: JP-GLAXOSMITHKLINE-B0813257A

PATIENT
  Age: 66 Year
  Sex: Female

DRUGS (3)
  1. TYKERB [Suspect]
     Indication: BREAST CANCER
     Route: 048
  2. MAGMITT [Concomitant]
     Route: 048
  3. XELODA [Concomitant]
     Route: 048

REACTIONS (4)
  - Bone marrow failure [Unknown]
  - Skin fissures [Unknown]
  - Constipation [Unknown]
  - Eating disorder [Unknown]
